FAERS Safety Report 11882072 (Version 1)
Quarter: 2015Q4

REPORT INFORMATION
  Report Type: Spontaneous
  Country: TH (occurrence: TH)
  Receive Date: 20151231
  Receipt Date: 20151231
  Transmission Date: 20160305
  Serious: Yes (Other)
  Sender: FDA-Public Use
  Company Number: TH-CIPLA LTD.-2015TH09833

PATIENT

DRUGS (2)
  1. LOPINAVIR/RITONAVIR [Suspect]
     Active Substance: LOPINAVIR\RITONAVIR
     Dosage: 400/100 MG, TWICE DAILY FOR 3 DAYS
     Route: 048
  2. QUININE SULPHATE [Suspect]
     Active Substance: QUININE SULFATE
     Dosage: 600 MG, TWICE DAILY FOR 3 DAYS
     Route: 048

REACTIONS (2)
  - Electrocardiogram QT prolonged [Unknown]
  - Drug interaction [Unknown]
